FAERS Safety Report 25061871 (Version 1)
Quarter: 2025Q1

REPORT INFORMATION
  Report Type: Spontaneous
  Country: CA (occurrence: CA)
  Receive Date: 20250311
  Receipt Date: 20250311
  Transmission Date: 20250408
  Serious: Yes (Other)
  Sender: GRIFOLS
  Company Number: CA-IGSA-BIG0033418

PATIENT
  Age: 85 Year
  Sex: Male

DRUGS (2)
  1. IGIVNEX [Suspect]
     Active Substance: HUMAN IMMUNOGLOBULIN G
     Indication: Angiopathy
     Route: 042
  2. IGIVNEX [Suspect]
     Active Substance: HUMAN IMMUNOGLOBULIN G
     Indication: Product use in unapproved indication

REACTIONS (1)
  - Transfusion-related circulatory overload [Recovered/Resolved with Sequelae]

NARRATIVE: CASE EVENT DATE: 20250129
